FAERS Safety Report 25184513 (Version 1)
Quarter: 2025Q2

REPORT INFORMATION
  Report Type: Spontaneous
  Country: US (occurrence: None)
  Receive Date: 20250409
  Receipt Date: 20250409
  Transmission Date: 20250717
  Serious: Yes (Hospitalization)
  Sender: FDA-CTU
  Company Number: None

PATIENT
  Age: 48 Year
  Sex: Male
  Weight: 97 kg

DRUGS (4)
  1. EMPAGLIFLOZIN [Suspect]
     Active Substance: EMPAGLIFLOZIN
     Indication: Diabetes mellitus
     Route: 048
     Dates: end: 20250130
  2. GLIPIZIDE [Suspect]
     Active Substance: GLIPIZIDE
  3. SITAGLIPTIN [Suspect]
     Active Substance: SITAGLIPTIN
  4. METFORMIN [Suspect]
     Active Substance: METFORMIN HYDROCHLORIDE

REACTIONS (11)
  - Acidosis [None]
  - Diarrhoea [None]
  - Vomiting [None]
  - Abdominal pain upper [None]
  - Hypophagia [None]
  - Hypovolaemia [None]
  - Heart rate increased [None]
  - Euglycaemic diabetic ketoacidosis [None]
  - Impaired gastric emptying [None]
  - Starvation [None]
  - Ketosis [None]

NARRATIVE: CASE EVENT DATE: 20250130
